FAERS Safety Report 5822503-5 (Version None)
Quarter: 2008Q3

REPORT INFORMATION
  Report Type: 
  Country: None (occurrence: None)
  Receive Date: 20080722
  Receipt Date: 20080714
  Transmission Date: 20090109
  Serious: Yes (Hospitalization)
  Sender: FDA-Public Use
  Company Number: 2008SP007340

PATIENT
  Age: 79 Year
  Sex: Male
  Weight: 78 kg

DRUGS (9)
  1. PEG-INTRON [Suspect]
     Indication: METASTATIC MALIGNANT MELANOMA
     Dosage: 234 MCG;QD;SC; MCG/KG;QD;SC
     Route: 058
     Dates: start: 20080409, end: 20080422
  2. PEG-INTRON [Suspect]
     Indication: METASTATIC MALIGNANT MELANOMA
     Dosage: 234 MCG;QD;SC; MCG/KG;QD;SC
     Route: 058
     Dates: start: 20080507
  3. SORAFENIB (SORAFENIB) [Suspect]
     Indication: METASTATIC MALIGNANT MELANOMA
     Dosage: 800 MG;QD;PO; 100 MG;QD;PO
     Route: 048
     Dates: start: 20080407, end: 20080423
  4. SORAFENIB (SORAFENIB) [Suspect]
     Indication: METASTATIC MALIGNANT MELANOMA
     Dosage: 800 MG;QD;PO; 100 MG;QD;PO
     Route: 048
     Dates: start: 20080505
  5. GRANISETRON HCL [Suspect]
     Indication: NAUSEA
     Dosage: 9 MG;QD;IV
     Route: 042
     Dates: start: 20080418
  6. RAMIPRIL COMP 5/35 [Concomitant]
  7. TERABLOCK (TERAZOSIN) [Concomitant]
  8. PARACETAMOL [Concomitant]
  9. NOVAMINSULFON [Concomitant]

REACTIONS (7)
  - ANOREXIA [None]
  - DEHYDRATION [None]
  - GENERAL PHYSICAL HEALTH DETERIORATION [None]
  - LUMBAR VERTEBRAL FRACTURE [None]
  - NAUSEA [None]
  - SPINAL COMPRESSION FRACTURE [None]
  - THORACIC VERTEBRAL FRACTURE [None]
